FAERS Safety Report 9520163 (Version 2)
Quarter: 2013Q3

REPORT INFORMATION
  Report Type: Report from Study
  Country: US (occurrence: US)
  Receive Date: 20130912
  Receipt Date: 20130912
  Transmission Date: 20140515
  Serious: Yes (Hospitalization)
  Sender: FDA-Public Use
  Company Number: US-US-EMD SERONO, INC.-7229240

PATIENT
  Age: 60 Year
  Sex: Female

DRUGS (2)
  1. REBIF [Suspect]
     Indication: MULTIPLE SCLEROSIS
     Route: 058
     Dates: start: 20110517, end: 20130814
  2. REBIF [Suspect]
     Route: 058
     Dates: start: 20130830, end: 20130830

REACTIONS (3)
  - Urinary tract infection [Unknown]
  - Multiple sclerosis relapse [Unknown]
  - Fatigue [Unknown]
